FAERS Safety Report 7114086-7 (Version None)
Quarter: 2010Q4

REPORT INFORMATION
  Report Type: 
  Country: None (occurrence: None)
  Receive Date: 20101119
  Receipt Date: 20101111
  Transmission Date: 20110411
  Serious: Yes (Other)
  Sender: FDA-Public Use
  Company Number: US-PFIZER INC-2010081014

PATIENT
  Sex: Male

DRUGS (1)
  1. SUTENT [Suspect]
     Indication: METASTATIC RENAL CELL CARCINOMA
     Dosage: 50 MG, 1X/DAY, DAILY X 28 EVEY 42 DAYS
     Route: 048
     Dates: start: 20100625

REACTIONS (3)
  - FULL BLOOD COUNT DECREASED [None]
  - RENAL IMPAIRMENT [None]
  - SLEEP DISORDER [None]
